FAERS Safety Report 14660710 (Version 1)
Quarter: 2018Q1

REPORT INFORMATION
  Report Type: Spontaneous
  Country: US (occurrence: US)
  Receive Date: 20180306
  Receipt Date: 20180306
  Transmission Date: 20180509
  Serious: Yes (Disabling, Other)
  Sender: FDA-Public Use
  Company Number: None

PATIENT
  Age: 54 Year
  Sex: Female
  Weight: 63.5 kg

DRUGS (13)
  1. PROGESTERONE. [Concomitant]
     Active Substance: PROGESTERONE
  2. VITAMIN D [Concomitant]
     Active Substance: CHOLECALCIFEROL
  3. LEVOTHROXINE [Concomitant]
     Active Substance: LEVOTHYROXINE
  4. EVAMIST [Concomitant]
     Active Substance: ESTRADIOL
  5. HUMALOG [Concomitant]
     Active Substance: INSULIN LISPRO
  6. LISINOPRIL. [Concomitant]
     Active Substance: LISINOPRIL
  7. BUPROPION. [Concomitant]
     Active Substance: BUPROPION
  8. BIOTIN [Concomitant]
     Active Substance: BIOTIN
  9. KENALOG [Suspect]
     Active Substance: TRIAMCINOLONE ACETONIDE
  10. MULTIVITAMIN [Concomitant]
     Active Substance: VITAMINS
  11. LINZESS [Concomitant]
     Active Substance: LINACLOTIDE
  12. PRAVASTATIN. [Concomitant]
     Active Substance: PRAVASTATIN
  13. LISINOPRIL. [Concomitant]
     Active Substance: LISINOPRIL

REACTIONS (1)
  - Injection site atrophy [None]

NARRATIVE: CASE EVENT DATE: 20140825
